FAERS Safety Report 19912396 (Version 1)
Quarter: 2021Q4

REPORT INFORMATION
  Report Type: Spontaneous
  Country: US (occurrence: US)
  Receive Date: 20211002
  Receipt Date: 20211002
  Transmission Date: 20220304
  Serious: Yes (Hospitalization)
  Sender: FDA-Public Use
  Company Number: None

PATIENT
  Age: 16 Year
  Sex: Male
  Weight: 58 kg

DRUGS (13)
  1. CYCLOPHOSPHAMIDE [Suspect]
     Active Substance: CYCLOPHOSPHAMIDE
     Dates: end: 20210917
  2. CYTARABINE [Suspect]
     Active Substance: CYTARABINE
     Dates: end: 20210924
  3. DAUNORUBICIN [Suspect]
     Active Substance: DAUNORUBICIN
     Dates: end: 20210723
  4. MERCAPTOPURINE [Suspect]
     Active Substance: MERCAPTOPURINE
     Dates: end: 20210929
  5. METHOTREXATE [Suspect]
     Active Substance: METHOTREXATE
     Dates: end: 20210831
  6. ONCASPAR [Suspect]
     Active Substance: PEGASPARGASE
     Dosage: ?          OTHER DOSE:4425IU;
     Dates: end: 20210825
  7. VINCRISTINE SULFATE [Suspect]
     Active Substance: VINCRISTINE SULFATE
     Dates: end: 20210831
  8. SODIUM CHLORIDE [Concomitant]
     Active Substance: SODIUM CHLORIDE
  9. GABAPENTIN [Concomitant]
     Active Substance: GABAPENTIN
  10. MORPHINE [Concomitant]
     Active Substance: MORPHINE
  11. ONDANSETRON [Concomitant]
     Active Substance: ONDANSETRON
  12. OXYCODONE [Concomitant]
     Active Substance: OXYCODONE
  13. PIPERACILLIN AND TAZOBACTAM [Concomitant]
     Active Substance: PIPERACILLIN SODIUM\TAZOBACTAM SODIUM

REACTIONS (9)
  - Abdominal pain [None]
  - Nausea [None]
  - Vomiting [None]
  - Cough [None]
  - Catheter site discharge [None]
  - Fall [None]
  - Head injury [None]
  - Loss of consciousness [None]
  - Appendicitis [None]

NARRATIVE: CASE EVENT DATE: 20210930
